FAERS Safety Report 4402393-8 (Version None)
Quarter: 2004Q3

REPORT INFORMATION
  Report Type: 
  Country: None (occurrence: None)
  Receive Date: 20040712
  Receipt Date: 20040628
  Transmission Date: 20050211
  Serious: No
  Sender: FDA-Public Use
  Company Number: 200410262BCA

PATIENT
  Age: 54 Year
  Sex: Female
  Weight: 59.8748 kg

DRUGS (16)
  1. GAMUNEX [Suspect]
     Indication: IDIOPATHIC THROMBOCYTOPENIC PURPURA
     Dosage: 10 G, BIW, INTRAVENOUS; SEE IMAGE
     Route: 042
     Dates: start: 20040203
  2. GAMUNEX [Suspect]
     Indication: IDIOPATHIC THROMBOCYTOPENIC PURPURA
     Dosage: 10 G, BIW, INTRAVENOUS; SEE IMAGE
     Route: 042
     Dates: start: 20040206
  3. GAMUNEX [Suspect]
     Indication: IDIOPATHIC THROMBOCYTOPENIC PURPURA
     Dosage: 10 G, BIW, INTRAVENOUS; SEE IMAGE
     Route: 042
     Dates: start: 20040210
  4. GAMUNEX [Suspect]
     Indication: IDIOPATHIC THROMBOCYTOPENIC PURPURA
     Dosage: 10 G, BIW, INTRAVENOUS; SEE IMAGE
     Route: 042
     Dates: start: 20040213
  5. GAMUNEX [Suspect]
     Indication: IDIOPATHIC THROMBOCYTOPENIC PURPURA
     Dosage: 10 G, BIW, INTRAVENOUS; SEE IMAGE
     Route: 042
     Dates: start: 20040217
  6. GAMUNEX [Suspect]
     Indication: IDIOPATHIC THROMBOCYTOPENIC PURPURA
     Dosage: 10 G, BIW, INTRAVENOUS; SEE IMAGE
     Route: 042
     Dates: start: 20040220
  7. GAMUNEX [Suspect]
     Indication: IDIOPATHIC THROMBOCYTOPENIC PURPURA
     Dosage: 10 G, BIW, INTRAVENOUS; SEE IMAGE
     Route: 042
     Dates: start: 20040224
  8. GAMUNEX [Suspect]
     Indication: IDIOPATHIC THROMBOCYTOPENIC PURPURA
     Dosage: 10 G, BIW, INTRAVENOUS; SEE IMAGE
     Route: 042
     Dates: start: 20040227
  9. GAMUNEX [Suspect]
  10. GAMUNEX [Suspect]
  11. GAMUNEX [Suspect]
  12. .... [Suspect]
  13. .... [Suspect]
  14. ... [Suspect]
  15. ... [Suspect]
  16. ..... [Suspect]

REACTIONS (12)
  - ABDOMINAL PAIN [None]
  - BACK PAIN [None]
  - BONE PAIN [None]
  - FATIGUE [None]
  - HEADACHE [None]
  - LABIA ENLARGED [None]
  - NAUSEA [None]
  - NECK PAIN [None]
  - PAIN [None]
  - PAIN IN EXTREMITY [None]
  - TREATMENT NONCOMPLIANCE [None]
  - VOMITING [None]
